FAERS Safety Report 7605956-1 (Version None)
Quarter: 2011Q3

REPORT INFORMATION
  Report Type: 
  Country: None (occurrence: None)
  Receive Date: 20110713
  Receipt Date: 20110628
  Transmission Date: 20111222
  Serious: Yes (Other)
  Sender: FDA-Public Use
  Company Number: PHHY2011BR58803

PATIENT
  Age: 64 Year
  Sex: Female

DRUGS (3)
  1. DIOVAN [Suspect]
     Dosage: 320 MG, UNK
  2. OLCADIL [Suspect]
     Indication: DEPRESSION
  3. CLONAZEPAM [Concomitant]
     Indication: DEPRESSION

REACTIONS (2)
  - TACHYCARDIA [None]
  - INJURY CORNEAL [None]
